FAERS Safety Report 9723261 (Version 1)
Quarter: 2013Q4

REPORT INFORMATION
  Report Type: Report from Study
  Country: CA (occurrence: CA)
  Receive Date: 20131202
  Receipt Date: 20131202
  Transmission Date: 20140711
  Serious: Yes (Other)
  Sender: FDA-Public Use
  Company Number: CA-JNJFOC-20131117063

PATIENT
  Sex: Male
  Weight: 108.5 kg

DRUGS (3)
  1. REMICADE [Suspect]
     Indication: COLITIS ULCERATIVE
     Route: 042
  2. REMICADE [Suspect]
     Indication: COLITIS ULCERATIVE
     Route: 042
     Dates: start: 20111110
  3. TYLENOL [Concomitant]
     Indication: PREMEDICATION
     Route: 048

REACTIONS (3)
  - Respiratory depression [Recovered/Resolved]
  - Infusion related reaction [Recovered/Resolved]
  - Hot flush [Recovered/Resolved]
